FAERS Safety Report 5041845-7 (Version None)
Quarter: 2006Q2

REPORT INFORMATION
  Report Type: 
  Country: None (occurrence: None)
  Receive Date: 20060630
  Receipt Date: 20060620
  Transmission Date: 20061013
  Serious: Yes (Hospitalization)
  Sender: FDA-Public Use
  Company Number: 2006S1003985

PATIENT
  Age: 58 Year
  Sex: Female
  Weight: 58.9676 kg

DRUGS (12)
  1. FENTANYL TRANSDERMAL SYSTEM [Suspect]
     Indication: MENINGITIS VIRAL
     Dosage: 75 UG/HR; Q3D; TRANS
     Dates: start: 20051201, end: 20060501
  2. FENTANYL TRANSDERMAL SYSTEM [Suspect]
     Indication: PAIN
     Dosage: 75 UG/HR; Q3D; TRANS
     Dates: start: 20051201, end: 20060501
  3. GANCICLOVIR SODIUM [Concomitant]
  4. ESTROGENS CONJUGATED [Concomitant]
  5. PAROXETINE HYDROCHLORIDE [Concomitant]
  6. TRAZODONE HCL [Concomitant]
  7. BUPROPION HYDROCHLORIDE [Concomitant]
  8. GABAPENTIN [Concomitant]
  9. LORAZEPAM [Concomitant]
  10. STOOL SOFTENER [Concomitant]
  11. TRIAMTERENE AND HYDROCHLOROTHIAZIDE [Concomitant]
  12. PROMETHAZINE [Concomitant]

REACTIONS (9)
  - ABDOMINAL PAIN UPPER [None]
  - DIARRHOEA [None]
  - DRUG WITHDRAWAL HEADACHE [None]
  - DRUG WITHDRAWAL SYNDROME [None]
  - HYPERHIDROSIS [None]
  - NAUSEA [None]
  - PHARMACEUTICAL PRODUCT COMPLAINT [None]
  - RHINORRHOEA [None]
  - VOMITING [None]
